FAERS Safety Report 4855254-4 (Version None)
Quarter: 2005Q4

REPORT INFORMATION
  Report Type: 
  Country: None (occurrence: None)
  Receive Date: 20051215
  Receipt Date: 20050304
  Transmission Date: 20060501
  Serious: Yes (Other)
  Sender: FDA-Public Use
  Company Number: US-MERCK-0503USA00961

PATIENT
  Age: 91 Year
  Sex: Female

DRUGS (1)
  1. VIOXX [Suspect]
     Indication: PAIN
     Route: 048

REACTIONS (2)
  - CEREBROVASCULAR ACCIDENT [None]
  - INJURY [None]
